FAERS Safety Report 16789601 (Version 4)
Quarter: 2019Q4

REPORT INFORMATION
  Report Type: Spontaneous
  Country: JP (occurrence: JP)
  Receive Date: 20190910
  Receipt Date: 20191127
  Transmission Date: 20200122
  Serious: Yes (Other)
  Sender: FDA-Public Use
  Company Number: JP-ASTELLAS-2019JP019871

PATIENT
  Age: 43 Year
  Sex: Male

DRUGS (3)
  1. XOSPATA [Suspect]
     Active Substance: GILTERITINIB
     Dosage: 80 MG UNK, UNKNOWN FREQ.
     Route: 048
     Dates: start: 20191108, end: 20191111
  2. FOSCARNET SODIUM HYDRATE [Concomitant]
     Active Substance: FOSCARNET SODIUM
     Indication: ENCEPHALITIS VIRAL
     Dosage: UNK UNK, UNKNOWN FREQ.
     Dates: start: 201908
  3. XOSPATA [Suspect]
     Active Substance: GILTERITINIB
     Indication: ACUTE MYELOID LEUKAEMIA
     Route: 048
     Dates: start: 20190613, end: 20190703

REACTIONS (5)
  - Hepatic vein occlusion [Unknown]
  - Encephalitis viral [Recovering/Resolving]
  - Infection [Unknown]
  - Renal impairment [Unknown]
  - Hepatic enzyme increased [Unknown]

NARRATIVE: CASE EVENT DATE: 20190803
